FAERS Safety Report 5888734-3 (Version None)
Quarter: 2008Q3

REPORT INFORMATION
  Report Type: 
  Country: None (occurrence: None)
  Receive Date: 20080917
  Receipt Date: 20080908
  Transmission Date: 20090109
  Serious: Yes (Death)
  Sender: FDA-Public Use
  Company Number: 2008BI017183

PATIENT
  Age: 50 Year
  Sex: Male

DRUGS (1)
  1. TYSABRI [Suspect]
     Indication: MULTIPLE SCLEROSIS
     Dosage: 300 MG;QM;IV
     Route: 042
     Dates: start: 20071026, end: 20080109

REACTIONS (4)
  - ASPIRATION [None]
  - DYSPHAGIA [None]
  - PNEUMONIA [None]
  - RESPIRATORY FAILURE [None]
